FAERS Safety Report 6177980-X (Version None)
Quarter: 2009Q2

REPORT INFORMATION
  Report Type: 
  Country: None (occurrence: None)
  Receive Date: 20090504
  Receipt Date: 20090105
  Transmission Date: 20091009
  Serious: No
  Sender: FDA-Public Use
  Company Number: US-ALEXION-A200900012

PATIENT
  Sex: Male

DRUGS (17)
  1. SOLIRIS [Suspect]
     Indication: PAROXYSMAL NOCTURNAL HAEMOGLOBINURIA
     Dosage: 900 MG, UNK
     Route: 042
  2. FLOMAX [Concomitant]
     Indication: PROSTATOMEGALY
     Dosage: 0.4 MG, QD
     Route: 048
  3. FINASTERIDE [Concomitant]
     Indication: PROSTATOMEGALY
     Dosage: 5 MG, QD
     Route: 048
  4. POTASSIUM CHLORIDE [Concomitant]
     Dosage: 10 MG, QD
     Route: 048
  5. ATENOLOL [Concomitant]
     Indication: HYPERTENSION
     Dosage: 50 MG, QD
     Route: 048
  6. FUROSEMIDE [Concomitant]
     Indication: OEDEMA
     Dosage: 40 MG, QD
     Route: 048
  7. VERAPAMIL [Concomitant]
     Indication: CARDIAC DISORDER
     Dosage: 180 MG, QD
     Route: 048
  8. CHLORDIAZEPOXIDE [Concomitant]
     Indication: ANXIETY
     Dosage: 10 MG, QD
     Route: 048
  9. LEVOTHYROXINE SODIUM [Concomitant]
     Indication: THYROID DISORDER
     Dosage: 75 MG, QD
     Route: 048
  10. INSULIN [Concomitant]
     Indication: DIABETES MELLITUS
     Dosage: UNK
  11. PREDNISONE [Concomitant]
     Indication: PAROXYSMAL NOCTURNAL HAEMOGLOBINURIA
     Dosage: 10 MG, QD
     Route: 048
  12. ASPIRIN [Concomitant]
     Indication: CARDIAC DISORDER
     Dosage: 81 MG, QD
     Route: 048
  13. FOLATE [Concomitant]
     Indication: PAROXYSMAL NOCTURNAL HAEMOGLOBINURIA
     Dosage: 7 MG, QD
     Route: 048
  14. LORTAB [Concomitant]
     Indication: PAIN IN EXTREMITY
     Dosage: 5/500 MG, PRN
     Route: 048
  15. LORTAB [Concomitant]
     Indication: BACK PAIN
  16. ARANESP [Concomitant]
     Indication: PAROXYSMAL NOCTURNAL HAEMOGLOBINURIA
     Dosage: Q2W
  17. ARANESP [Concomitant]
     Indication: RED BLOOD CELL COUNT ABNORMAL

REACTIONS (3)
  - ASTHENIA [None]
  - BACK PAIN [None]
  - FATIGUE [None]
